FAERS Safety Report 6435984-3 (Version None)
Quarter: 2009Q4

REPORT INFORMATION
  Report Type: 
  Country: None (occurrence: None)
  Receive Date: 20091029
  Receipt Date: 20090925
  Transmission Date: 20100525
  Serious: Yes (Hospitalization, Other)
  Sender: FDA-Public Use
  Company Number: THYM-1001208

PATIENT
  Age: 21 Year
  Sex: Female

DRUGS (1)
  1. THYMOGLOBULIN [Suspect]
     Indication: RENAL TRANSPLANT
     Dosage: 75 MG, INTRAVENOUS
     Route: 042
     Dates: start: 20080710, end: 20090716

REACTIONS (4)
  - RENAL ARTERY THROMBOSIS [None]
  - RENAL GRAFT LOSS [None]
  - RENAL INFARCT [None]
  - SERUM SICKNESS [None]
